FAERS Safety Report 9466688 (Version 2)
Quarter: 2013Q3

REPORT INFORMATION
  Report Type: Spontaneous
  Country: JP (occurrence: JP)
  Receive Date: 20130820
  Receipt Date: 20130820
  Transmission Date: 20140515
  Serious: Yes (Other)
  Sender: FDA-Public Use
  Company Number: JP-NAPPMUNDI-GBR-2013-0015301

PATIENT
  Age: 60 Year
  Sex: Male

DRUGS (3)
  1. OXYCODONE HCL PR TABLET [Suspect]
     Indication: PRODUCT USED FOR UNKNOWN INDICATION
     Dosage: 30 MG, DAILY
     Route: 048
  2. OXYCODONE HCL PR TABLET [Suspect]
     Dosage: 50 MG, DAILY
     Route: 048
  3. OXYCODONE HCL PR TABLET [Suspect]
     Dosage: 40 MG, DAILY
     Route: 048

REACTIONS (1)
  - Delirium [Recovering/Resolving]
